FAERS Safety Report 10395487 (Version 1)
Quarter: 2014Q1

REPORT INFORMATION
  Report Type: Spontaneous
  Country: US (occurrence: None)
  Receive Date: 20130314
  Receipt Date: 20130314
  Transmission Date: 20141002
  Serious: Yes (Hospitalization)
  Sender: FDA-Public Use
  Company Number: THYM-1002981

PATIENT
  Age: 59 Year
  Sex: Male

DRUGS (7)
  1. THYMOGLOBULIN [Suspect]
     Indication: PROPHYLAXIS AGAINST TRANSPLANT REJECTION
     Route: 042
     Dates: start: 20111205
  2. CELLCEPT (MYCOPHENOLATE MOFETIL) [Concomitant]
  3. SOLU-MEDROL (METHYLPREDNISOLONE SODIUM SUCCINATE) [Concomitant]
  4. CIPRO (CIPROFLOXACIN HYDROCHLORIDE) [Concomitant]
  5. SEPTRA (SULFAMETHOXAZOLE, TRIMETHOPRIM) [Concomitant]
  6. FLUCONAZOLE (FLUCONAZOLE) [Concomitant]
  7. VALCYTE (VALGANCICLOVIR HYDROCHLORIDE) (VALGANCICLOVIR HYDROCHLORIDE) [Concomitant]

REACTIONS (1)
  - Hypotension [None]
